FAERS Safety Report 19958112 (Version 1)
Quarter: 2021Q4

REPORT INFORMATION
  Report Type: Spontaneous
  Country: US (occurrence: US)
  Receive Date: 20211015
  Receipt Date: 20211015
  Transmission Date: 20220303
  Serious: No
  Sender: FDA-Public Use
  Company Number: US-AMGEN-USASP2021157727

PATIENT
  Age: 34 Year
  Sex: Female

DRUGS (3)
  1. OTEZLA [Suspect]
     Active Substance: APREMILAST
     Indication: Migraine
     Dosage: 1 DOSAGE FORM, BID
     Route: 048
     Dates: end: 20210828
  2. OTEZLA [Suspect]
     Active Substance: APREMILAST
     Indication: Off label use
  3. SYNTHROID [Concomitant]
     Active Substance: LEVOTHYROXINE SODIUM
     Dosage: UNK

REACTIONS (4)
  - Headache [Unknown]
  - Cardiac disorder [Unknown]
  - Anxiety [Unknown]
  - Off label use [Unknown]
